FAERS Safety Report 9815222 (Version 1)
Quarter: 2014Q1

REPORT INFORMATION
  Report Type: Spontaneous
  Country: US (occurrence: US)
  Receive Date: 20140114
  Receipt Date: 20140114
  Transmission Date: 20141002
  Serious: Yes (Death)
  Sender: FDA-Public Use
  Company Number: US-BIOGENIDEC-2014BI000761

PATIENT
  Age: 62 Year
  Sex: Male

DRUGS (6)
  1. TECFIDERA [Suspect]
     Indication: MULTIPLE SCLEROSIS
     Route: 048
     Dates: start: 20130916
  2. NAPROXEN [Concomitant]
  3. NITROFURANTION MACROCRYSTAL [Concomitant]
  4. PRAMIPEXOLE DIHYDROCHLORIDE [Concomitant]
  5. QUINAPRIL- HYDROCHLOROTHIAZIDE [Concomitant]
  6. SIMVASTATIN [Concomitant]

REACTIONS (1)
  - Death [Fatal]
